FAERS Safety Report 11683839 (Version 1)
Quarter: 2015Q4

REPORT INFORMATION
  Report Type: Spontaneous
  Country: US (occurrence: US)
  Receive Date: 20151029
  Receipt Date: 20151029
  Transmission Date: 20160304
  Serious: No
  Sender: FDA-Public Use
  Company Number: US-ROCHE-1509475

PATIENT

DRUGS (3)
  1. TAXOL [Concomitant]
     Active Substance: PACLITAXEL
     Dosage: SERIES OF 12 WEEKS
     Route: 065
  2. HERCEPTIN [Suspect]
     Active Substance: TRASTUZUMAB
     Indication: PRODUCT USED FOR UNKNOWN INDICATION
     Dosage: SERIES OF 12 WEEKS
     Route: 065
     Dates: start: 201407
  3. HERCEPTIN [Suspect]
     Active Substance: TRASTUZUMAB
     Dosage: /AUG/2015
     Route: 065

REACTIONS (2)
  - Palpitations [Unknown]
  - Diarrhoea [Unknown]
